FAERS Safety Report 18407494 (Version 1)
Quarter: 2020Q4

REPORT INFORMATION
  Report Type: Spontaneous
  Country: US (occurrence: US)
  Receive Date: 20201020
  Receipt Date: 20201020
  Transmission Date: 20210114
  Serious: Yes (Other)
  Sender: FDA-Public Use
  Company Number: US-FRESENIUS KABI-FK202010946

PATIENT
  Age: 10 Year
  Sex: Male

DRUGS (11)
  1. BORTEZOMIB (MANUFACTURER UNKNOWN) [Suspect]
     Active Substance: BORTEZOMIB
     Indication: IMMUNOSUPPRESSANT DRUG THERAPY
     Route: 065
  2. FLUDARABINE [Suspect]
     Active Substance: FLUDARABINE PHOSPHATE
     Indication: CHEMOTHERAPY
     Dosage: UNKNOWN
     Route: 065
  3. TACROLIMUS. [Suspect]
     Active Substance: TACROLIMUS
     Indication: IMMUNOSUPPRESSANT DRUG THERAPY
     Dosage: UNKNOWN
     Route: 065
  4. PREDNISONE. [Suspect]
     Active Substance: PREDNISONE
     Indication: IMMUNOSUPPRESSANT DRUG THERAPY
     Dosage: UNKNOWN
     Route: 065
  5. ECULIZUMAB [Suspect]
     Active Substance: ECULIZUMAB
     Route: 065
  6. MYCOPHENOLATE MOFETIL HYDROCHLORIDE [Suspect]
     Active Substance: MYCOPHENOLATE MOFETIL HYDROCHLORIDE
     Indication: IMMUNOSUPPRESSANT DRUG THERAPY
     Dosage: UNKNOWN
     Route: 065
  7. RITUXIMAB. [Suspect]
     Active Substance: RITUXIMAB
     Indication: IMMUNOSUPPRESSANT DRUG THERAPY
     Route: 065
  8. ECULIZUMAB [Suspect]
     Active Substance: ECULIZUMAB
     Indication: IMMUNOSUPPRESSANT DRUG THERAPY
     Route: 065
  9. CYCLOPHOSPHAMIDE. [Suspect]
     Active Substance: CYCLOPHOSPHAMIDE
     Indication: CHEMOTHERAPY
     Dosage: UNKNOWN
     Route: 065
  10. ANTITHYMOCYTE IMMUNOGLOBULIN [Suspect]
     Active Substance: THYMOCYTE IMMUNE GLOBULIN NOS
     Indication: CHEMOTHERAPY
     Dosage: UNKNOWN
     Route: 065
  11. IMMUNOGLOBULIN HUMAN NORMAL [Suspect]
     Active Substance: HUMAN IMMUNOGLOBULIN G
     Indication: IMMUNOSUPPRESSANT DRUG THERAPY
     Route: 042

REACTIONS (3)
  - Encephalitis viral [Recovered/Resolved]
  - End stage renal disease [Recovered/Resolved]
  - Polyomavirus-associated nephropathy [Recovered/Resolved]
